FAERS Safety Report 11965711 (Version 2)
Quarter: 2016Q1

REPORT INFORMATION
  Report Type: Spontaneous
  Country: JP (occurrence: JP)
  Receive Date: 20160127
  Receipt Date: 20160129
  Transmission Date: 20160526
  Serious: Yes (Hospitalization)
  Sender: FDA-Public Use
  Company Number: PHJP2016JP001535

PATIENT
  Age: 90 Year
  Sex: Male

DRUGS (1)
  1. EXELON PATCH [Suspect]
     Active Substance: RIVASTIGMINE
     Indication: DEMENTIA
     Dosage: 9.5 MG, QD (PATCH 10, RIVASTIGMINE BASE 18 MG)
     Route: 062

REACTIONS (1)
  - Bile duct obstruction [Recovering/Resolving]

NARRATIVE: CASE EVENT DATE: 20160118
